FAERS Safety Report 9131597 (Version 1)
Quarter: 2013Q1

REPORT INFORMATION
  Report Type: Spontaneous
  Country: US (occurrence: US)
  Receive Date: 20130301
  Receipt Date: 20130301
  Transmission Date: 20140127
  Serious: No
  Sender: FDA-Public Use
  Company Number: US-PFIZER INC-2013069980

PATIENT
  Age: 11 Month
  Sex: Female
  Weight: 10.43 kg

DRUGS (1)
  1. ADVIL PM [Suspect]
     Dosage: 200 MG, ONCE
     Dates: start: 20130225, end: 20130225

REACTIONS (2)
  - Accidental exposure to product by child [Unknown]
  - Fatigue [Unknown]
